FAERS Safety Report 5960340-1 (Version None)
Quarter: 2008Q4

REPORT INFORMATION
  Report Type: 
  Country: None (occurrence: None)
  Receive Date: 20081120
  Receipt Date: 20081106
  Transmission Date: 20090506
  Serious: Yes (Hospitalization, Other)
  Sender: FDA-Public Use
  Company Number: US-ELI_LILLY_AND_COMPANY-US200811001316

PATIENT
  Age: 82 Year
  Sex: Female

DRUGS (3)
  1. FORTEO [Suspect]
     Indication: OSTEOPOROSIS
     Dates: start: 20071201
  2. VERAPAMIL [Concomitant]
  3. VITAMINS NOS [Concomitant]

REACTIONS (2)
  - KNEE ARTHROPLASTY [None]
  - PRODUCT QUALITY ISSUE [None]
